FAERS Safety Report 11106258 (Version 2)
Quarter: 2015Q2

REPORT INFORMATION
  Report Type: Spontaneous
  Country: CH (occurrence: CH)
  Receive Date: 20150512
  Receipt Date: 20150619
  Transmission Date: 20150821
  Serious: Yes (Hospitalization, Other)
  Sender: FDA-Public Use
  Company Number: CH-AMGEN-CHESP2015044118

PATIENT
  Age: 94 Year
  Sex: Female
  Weight: 45 kg

DRUGS (3)
  1. PROLIA [Suspect]
     Active Substance: DENOSUMAB
     Indication: OSTEOPOROSIS POSTMENOPAUSAL
     Dosage: 60 MG, Q6MO
     Route: 058
     Dates: start: 20130125
  2. CANDESARTAN [Concomitant]
     Active Substance: CANDESARTAN
     Indication: HYPERTENSION
     Dosage: 16 MG, QD
     Route: 048
     Dates: start: 2010
  3. CALCIUM +VIT D [Concomitant]
     Active Substance: CALCIUM\VITAMIN D
     Indication: OSTEOPOROSIS
     Dosage: 1000/800, QD
     Route: 048
     Dates: start: 20121207

REACTIONS (4)
  - Impaired healing [Not Recovered/Not Resolved]
  - Fall [Recovered/Resolved]
  - Femur fracture [Recovered/Resolved]
  - Weight decreased [Unknown]

NARRATIVE: CASE EVENT DATE: 20140609
